FAERS Safety Report 10158296 (Version 2)
Quarter: 2014Q2

REPORT INFORMATION
  Report Type: Spontaneous
  Country: GB (occurrence: GB)
  Receive Date: 20140507
  Receipt Date: 20140521
  Transmission Date: 20141212
  Serious: Yes (Other)
  Sender: FDA-Public Use
  Company Number: PHFR2014GB003273

PATIENT
  Sex: Male

DRUGS (1)
  1. CLOZARIL [Suspect]
     Indication: SCHIZOPHRENIA
     Dates: start: 20130219

REACTIONS (6)
  - Circulatory collapse [Unknown]
  - Convulsion [Unknown]
  - Sleep apnoea syndrome [Unknown]
  - Headache [Unknown]
  - Somnolence [Unknown]
  - Syncope [Unknown]
